FAERS Safety Report 4755816-9 (Version None)
Quarter: 2005Q3

REPORT INFORMATION
  Report Type: 
  Country: None (occurrence: None)
  Receive Date: 20050830
  Receipt Date: 20050818
  Transmission Date: 20060218
  Serious: Yes (Hospitalization)
  Sender: FDA-Public Use
  Company Number: US-SOLVAY-00305002693

PATIENT
  Age: 42 Year
  Sex: Male

DRUGS (2)
  1. FLUVOXAMINE [Suspect]
     Indication: ILL-DEFINED DISORDER
     Dosage: DAILY DOSE: 300 MILLIGRAM(S)
     Route: 065
  2. METHADONE HCL [Interacting]
     Indication: DRUG DEPENDENCE
     Dosage: DAILY DOSE: 450 MILLIGRAM(S)
     Route: 065

REACTIONS (9)
  - DIZZINESS [None]
  - DRUG INTERACTION [None]
  - ELECTROCARDIOGRAM QT CORRECTED INTERVAL PROLONGED [None]
  - FACE INJURY [None]
  - FALL [None]
  - LOSS OF CONSCIOUSNESS [None]
  - SYNCOPE [None]
  - TONIC CLONIC MOVEMENTS [None]
  - TORSADE DE POINTES [None]
